FAERS Safety Report 13103504 (Version 4)
Quarter: 2018Q1

REPORT INFORMATION
  Report Type: Report from Study
  Country: TW (occurrence: TW)
  Receive Date: 20170111
  Receipt Date: 20180326
  Transmission Date: 20180508
  Serious: Yes (Death, Hospitalization, Other)
  Sender: FDA-Public Use
  Company Number: PHHY2013TW137778

PATIENT
  Age: 67 Year
  Sex: Male
  Weight: 60.3 kg

DRUGS (20)
  1. VELCADE [Concomitant]
     Active Substance: BORTEZOMIB
     Dosage: 2.2 ML, PRN
     Route: 065
     Dates: start: 20131113
  2. THALIDOMIDE [Concomitant]
     Active Substance: THALIDOMIDE
     Indication: PRODUCT USED FOR UNKNOWN INDICATION
     Dosage: UNK
     Route: 065
     Dates: start: 201109, end: 201302
  3. CORDARONE [Concomitant]
     Active Substance: AMIODARONE HYDROCHLORIDE
     Indication: ATRIAL FIBRILLATION
     Dosage: 200 MG, UNK
     Route: 048
     Dates: start: 20130201
  4. MOBIC [Concomitant]
     Active Substance: MELOXICAM
     Indication: BACK PAIN
     Dosage: 15 MG, UNK
     Route: 048
     Dates: start: 20121109, end: 20130215
  5. CONCOR [Concomitant]
     Active Substance: BISOPROLOL FUMARATE
     Indication: CARDIAC FAILURE CONGESTIVE
     Dosage: 1 DF, UNK
     Route: 048
     Dates: start: 20120703, end: 20120710
  6. METHYCOBAL [Concomitant]
     Active Substance: METHYLCOBALAMIN
     Indication: ANAEMIA
     Dosage: 1 DF, UNK
     Route: 048
     Dates: start: 20120703, end: 20120730
  7. CALCITONIN, SALMON [Suspect]
     Active Substance: CALCITONIN SALMON
     Indication: HYPERCALCAEMIA
     Dosage: UNK
     Route: 065
  8. MOBIC [Concomitant]
     Active Substance: MELOXICAM
     Indication: BONE PAIN
     Dosage: 15 MG, UNK
     Route: 048
     Dates: start: 20130311, end: 20130407
  9. VELCADE [Concomitant]
     Active Substance: BORTEZOMIB
     Indication: PLASMA CELL MYELOMA
     Dosage: 2.2 ML, PRN
     Route: 065
     Dates: start: 20131104
  10. VELCADE [Concomitant]
     Active Substance: BORTEZOMIB
     Dosage: 2.2 ML, PRN
     Route: 065
     Dates: start: 20131116, end: 20131120
  11. DEXTRAN [Concomitant]
     Active Substance: DEXTRAN
     Indication: PULMONARY EMBOLISM
     Dosage: 500 ML, UNK
     Route: 041
     Dates: start: 20120703, end: 20120710
  12. DIGOXIN. [Concomitant]
     Active Substance: DIGOXIN
     Indication: PRODUCT USED FOR UNKNOWN INDICATION
     Dosage: UNK
     Route: 065
     Dates: end: 201309
  13. NORVASC [Concomitant]
     Active Substance: AMLODIPINE BESYLATE
     Indication: HYPERTENSION
     Dosage: 1 DF, UNK
     Route: 048
     Dates: start: 20120703, end: 20120710
  14. ZOMETA [Suspect]
     Active Substance: ZOLEDRONIC ACID
     Indication: PLASMA CELL MYELOMA
     Dosage: 4 MG, UNK
     Route: 042
     Dates: start: 20110923, end: 20130510
  15. TABALUMAB [Concomitant]
     Active Substance: TABALUMAB
     Indication: PRODUCT USED FOR UNKNOWN INDICATION
     Dosage: UNK
     Route: 065
     Dates: start: 20130215, end: 20130517
  16. COUMADINE [Concomitant]
     Active Substance: WARFARIN SODIUM
     Indication: PRODUCT USED FOR UNKNOWN INDICATION
     Route: 065
  17. TARGOCID [Concomitant]
     Active Substance: TEICOPLANIN
     Indication: PRODUCT USED FOR UNKNOWN INDICATION
     Route: 065
  18. MEPEM [Concomitant]
     Active Substance: MEROPENEM
     Indication: PRODUCT USED FOR UNKNOWN INDICATION
     Route: 065
  19. LASIX [Concomitant]
     Active Substance: FUROSEMIDE
     Indication: OEDEMA
     Dosage: 20 MG, UNK
     Route: 048
     Dates: start: 20121116, end: 20121206
  20. ULTRACET [Concomitant]
     Active Substance: ACETAMINOPHEN\TRAMADOL HYDROCHLORIDE
     Indication: BONE PAIN
     Dosage: 1 DF, UNK
     Route: 048
     Dates: start: 20130215, end: 20130509

REACTIONS (45)
  - Gastrointestinal haemorrhage [Unknown]
  - General physical health deterioration [Unknown]
  - Delirium [Unknown]
  - Diarrhoea [Not Recovered/Not Resolved]
  - Erythema [Unknown]
  - Wheezing [Unknown]
  - Haematemesis [Unknown]
  - Autonomic nervous system imbalance [Unknown]
  - Plasma cell myeloma [Unknown]
  - Hypernatraemia [Unknown]
  - Blood pressure abnormal [Unknown]
  - Adrenal disorder [Unknown]
  - Atrial fibrillation [Unknown]
  - Lung infiltration [Unknown]
  - Bradycardia [Unknown]
  - Pain [Unknown]
  - Abdominal pain [Not Recovered/Not Resolved]
  - Septic shock [Fatal]
  - Atrial flutter [Unknown]
  - Pleural effusion [Unknown]
  - Pulmonary congestion [Unknown]
  - Clostridium difficile infection [Unknown]
  - Hypotension [Unknown]
  - Hypertension [Recovered/Resolved]
  - Cough [Recovered/Resolved]
  - Pseudomonas infection [Unknown]
  - Cardiac failure acute [Unknown]
  - Infection [Unknown]
  - Sepsis [Unknown]
  - Stenotrophomonas infection [Unknown]
  - Acute kidney injury [Unknown]
  - Anuria [Unknown]
  - Carbon dioxide decreased [Unknown]
  - Anxiety [Recovered/Resolved]
  - Abdominal pain [Recovered/Resolved]
  - Cardiac arrest [Unknown]
  - Amyloidosis [Unknown]
  - Cardiac failure chronic [Recovered/Resolved]
  - Hypoventilation [Unknown]
  - Body tinea [Unknown]
  - Gastritis [Recovered/Resolved]
  - Pneumonia [Unknown]
  - Cellulitis [Unknown]
  - Pyrexia [Unknown]
  - Swelling [Unknown]

NARRATIVE: CASE EVENT DATE: 20120710
